FAERS Safety Report 5284677-7 (Version None)
Quarter: 2007Q2

REPORT INFORMATION
  Report Type: 
  Country: None (occurrence: None)
  Receive Date: 20070403
  Receipt Date: 20070323
  Transmission Date: 20071010
  Serious: Yes (Hospitalization)
  Sender: FDA-Public Use
  Company Number: FR-ROCHE-489385

PATIENT
  Age: 48 Year
  Sex: Female
  Weight: 62 kg

DRUGS (8)
  1. RIVOTRIL [Suspect]
     Indication: DRUG USE FOR UNKNOWN INDICATION
     Route: 048
     Dates: start: 20061125, end: 20061130
  2. BACTRIM [Suspect]
     Indication: DRUG USE FOR UNKNOWN INDICATION
     Route: 048
  3. TRIZIVIR [Suspect]
     Indication: HIV INFECTION
     Route: 048
  4. TRIZIVIR [Suspect]
     Route: 048
     Dates: start: 20061129
  5. KALETRA [Suspect]
     Indication: HIV INFECTION
     Route: 048
  6. KALETRA [Suspect]
     Route: 048
     Dates: start: 20061129
  7. NEURONTIN [Suspect]
     Indication: DRUG USE FOR UNKNOWN INDICATION
     Route: 048
     Dates: start: 20061129
  8. DI-ANTALVIC [Suspect]
     Indication: DRUG USE FOR UNKNOWN INDICATION
     Route: 048
     Dates: start: 20061123

REACTIONS (1)
  - ELECTROCARDIOGRAM PR PROLONGATION [None]
